FAERS Safety Report 7069412-4 (Version None)
Quarter: 2010Q4

REPORT INFORMATION
  Report Type: 
  Country: None (occurrence: None)
  Receive Date: 20101028
  Receipt Date: 20101025
  Transmission Date: 20110411
  Serious: Yes (Other)
  Sender: FDA-Public Use
  Company Number: CA-MERCK-1010USA02831

PATIENT
  Age: 56 Year
  Sex: Male

DRUGS (4)
  1. COZAAR [Suspect]
     Route: 048
     Dates: start: 20100917
  2. ATORVASTATIN [Concomitant]
     Route: 065
  3. LAMOTRIGINE [Concomitant]
     Indication: EPILEPSY
     Route: 065
  4. CLOBAZAM [Concomitant]
     Indication: EPILEPSY
     Route: 065

REACTIONS (1)
  - CONVULSION [None]
